FAERS Safety Report 25884775 (Version 1)
Quarter: 2025Q4

REPORT INFORMATION
  Report Type: Spontaneous
  Country: US (occurrence: None)
  Receive Date: 20251003
  Receipt Date: 20251003
  Transmission Date: 20260118
  Serious: Yes (Hospitalization, Other)
  Sender: FDA-CTU
  Company Number: None

PATIENT
  Age: 73 Year
  Sex: Female
  Weight: 84.5 kg

DRUGS (23)
  1. VICTOZA [Suspect]
     Active Substance: LIRAGLUTIDE
     Indication: Type 2 diabetes mellitus
     Dosage: FREQUENCY : DAILY;?
     Route: 058
     Dates: start: 20200528, end: 20240724
  2. OZEMPIC [Suspect]
     Active Substance: SEMAGLUTIDE
     Indication: Type 2 diabetes mellitus
     Dosage: OTHER FREQUENCY : WEEKLY;?
     Route: 058
     Dates: start: 20240725, end: 20241130
  3. ACETAMINOPHEN [Concomitant]
     Active Substance: ACETAMINOPHEN
  4. AMLODIPINE [Concomitant]
     Active Substance: AMLODIPINE BESYLATE
  5. ASPIRIN [Concomitant]
     Active Substance: ASPIRIN
  6. ATORVASTATIN [Concomitant]
     Active Substance: ATORVASTATIN
  7. CETIRIZINE [Concomitant]
     Active Substance: CETIRIZINE HYDROCHLORIDE
  8. ESTRADIOL [Concomitant]
     Active Substance: ESTRADIOL
  9. FLUTICASONE [Concomitant]
     Active Substance: FLUTICASONE
  10. GAVISCON [Concomitant]
     Active Substance: ALUMINUM HYDROXIDE\MAGNESIUM CARBONATE
  11. IBUPROFEN [Concomitant]
     Active Substance: IBUPROFEN
  12. LEVOTHYROXINE [Concomitant]
     Active Substance: LEVOTHYROXINE
  13. LISINOPRIL [Concomitant]
     Active Substance: LISINOPRIL
  14. METFORMIN [Concomitant]
     Active Substance: METFORMIN HYDROCHLORIDE
  15. OMEPRAZOLE [Concomitant]
     Active Substance: OMEPRAZOLE
  16. SENNOSIDES [Concomitant]
     Active Substance: SENNOSIDES
  17. MAGNESIUM CITRATE [Concomitant]
     Active Substance: MAGNESIUM CITRATE
  18. metamucil sugar free [Concomitant]
  19. VITAMINS [Concomitant]
     Active Substance: VITAMINS
  20. NYSTATIN [Concomitant]
     Active Substance: NYSTATIN
  21. TRIAMCINOLONE [Concomitant]
     Active Substance: TRIAMCINOLONE
  22. PREVIDENT [Concomitant]
     Active Substance: SODIUM FLUORIDE
  23. REFRESH TEARS [Concomitant]
     Active Substance: CARBOXYMETHYLCELLULOSE SODIUM

REACTIONS (15)
  - Blood glucose increased [None]
  - Therapy change [None]
  - Drug ineffective [None]
  - Fatigue [None]
  - Nausea [None]
  - Early satiety [None]
  - Constipation [None]
  - Headache [None]
  - Bursitis [None]
  - Hepatic enzyme increased [None]
  - Abdominal pain upper [None]
  - Bile duct stenosis [None]
  - Pancreatic carcinoma [None]
  - Pulmonary mass [None]
  - Adenocarcinoma [None]

NARRATIVE: CASE EVENT DATE: 20250918
